FAERS Safety Report 16551066 (Version 1)
Quarter: 2019Q3

REPORT INFORMATION
  Report Type: Spontaneous
  Country: US (occurrence: US)
  Receive Date: 20190709
  Receipt Date: 20190709
  Transmission Date: 20191004
  Serious: Yes (Other)
  Sender: FDA-Public Use
  Company Number: None

PATIENT
  Age: 26 Year
  Sex: Female
  Weight: 60.75 kg

DRUGS (1)
  1. MONISTAT TIOCONAZOLE 1 [Suspect]
     Active Substance: TIOCONAZOLE
     Indication: FUNGAL INFECTION
     Dosage: ?          QUANTITY:1 SUPPOSITORY(IES);?
     Route: 067
     Dates: start: 20190707, end: 20190709

REACTIONS (6)
  - Vulvovaginal burning sensation [None]
  - Application site exfoliation [None]
  - Product complaint [None]
  - Product use complaint [None]
  - Chemical burn [None]
  - Vulvovaginal swelling [None]

NARRATIVE: CASE EVENT DATE: 20190707
